FAERS Safety Report 7077575-X (Version None)
Quarter: 2010Q4

REPORT INFORMATION
  Report Type: 
  Country: None (occurrence: None)
  Receive Date: 20101021
  Receipt Date: 20101005
  Transmission Date: 20110411
  Serious: Yes (Hospitalization)
  Sender: FDA-Public Use
  Company Number: 2010BI027222

PATIENT
  Age: 57 Year
  Sex: Female

DRUGS (8)
  1. ZEVALIN [Suspect]
     Indication: NON-HODGKIN'S LYMPHOMA RECURRENT
     Dosage: 0.4 MCI/KG;1X;IV
     Route: 042
  2. ZEVALIN [Suspect]
     Indication: STEM CELL TRANSPLANT
     Dosage: 0.4 MCI/KG;1X;IV
     Route: 042
  3. RITUXIMAB [Concomitant]
  4. FLUDARABINE [Concomitant]
  5. BUSULFAN [Concomitant]
  6. THYMOGLOBULIN [Concomitant]
  7. CYCLOSPORINE [Concomitant]
  8. PREV MEDS [Concomitant]

REACTIONS (17)
  - ABDOMINAL PAIN [None]
  - ACUTE GRAFT VERSUS HOST DISEASE [None]
  - COLITIS [None]
  - CYTOMEGALOVIRUS INFECTION [None]
  - DIARRHOEA [None]
  - ERYTHEMA [None]
  - ESCHERICHIA INFECTION [None]
  - FEBRILE NEUTROPENIA [None]
  - HUMAN HERPES VIRUS 6 SEROLOGY POSITIVE [None]
  - KLEBSIELLA INFECTION [None]
  - NAUSEA [None]
  - OEDEMA PERIPHERAL [None]
  - OESOPHAGEAL CANDIDIASIS [None]
  - PANCYTOPENIA [None]
  - PATHOGEN RESISTANCE [None]
  - RASH PAPULAR [None]
  - TACHYCARDIA [None]
